FAERS Safety Report 18246001 (Version 1)
Quarter: 2020Q3

REPORT INFORMATION
  Report Type: Spontaneous
  Country: US (occurrence: US)
  Receive Date: 20200908
  Receipt Date: 20200908
  Transmission Date: 20201103
  Serious: No
  Sender: FDA-Public Use
  Company Number: None

PATIENT
  Age: 67 Year
  Sex: Female
  Weight: 54.43 kg

DRUGS (2)
  1. TALTZ [Suspect]
     Active Substance: IXEKIZUMAB
     Indication: PSORIASIS
     Dosage: ?          OTHER DOSE:80MG (1 PEN);?
     Route: 058
     Dates: start: 202005
  2. TALTZ [Suspect]
     Active Substance: IXEKIZUMAB
     Indication: OSTEOPOROSIS
     Dosage: ?          OTHER DOSE:80MG (1 PEN);?
     Route: 058
     Dates: start: 202005

REACTIONS (1)
  - Pneumonia [None]
